FAERS Safety Report 10506370 (Version 1)
Quarter: 2014Q4

REPORT INFORMATION
  Report Type: Spontaneous
  Country: US (occurrence: US)
  Receive Date: 20141009
  Receipt Date: 20141009
  Transmission Date: 20150528
  Serious: Yes (Other)
  Sender: FDA-Public Use
  Company Number: US-BIOGENIDEC-2014BI103673

PATIENT
  Sex: Female

DRUGS (1)
  1. AVONEX [Suspect]
     Active Substance: INTERFERON BETA-1A
     Indication: MULTIPLE SCLEROSIS
     Route: 030
     Dates: start: 20040302, end: 20040802

REACTIONS (5)
  - Injection site atrophy [Recovered/Resolved]
  - Angioplasty [Unknown]
  - Influenza like illness [Recovered/Resolved]
  - Drug ineffective [Recovered/Resolved]
  - Mobility decreased [Recovered/Resolved]
